FAERS Safety Report 4394212-3 (Version None)
Quarter: 2004Q3

REPORT INFORMATION
  Report Type: 
  Country: None (occurrence: None)
  Receive Date: 20040706
  Receipt Date: 20040623
  Transmission Date: 20050211
  Serious: Yes (Hospitalization)
  Sender: FDA-Public Use
  Company Number: WAES 0305USA01188

PATIENT
  Age: 67 Year
  Sex: Female

DRUGS (4)
  1. ERTAPENEM SODIUM [Suspect]
     Indication: LOCALISED INFECTION
     Dosage: 1 GM, DAILY; IV
     Route: 042
     Dates: start: 20030504, end: 20030509
  2. PLACEBO [Suspect]
     Indication: LOCALISED INFECTION
     Dosage: UNK, TID; IV
     Route: 042
     Dates: start: 20030504, end: 20030509
  3. AVANDIA [Concomitant]
  4. GLUCOTROL [Concomitant]

REACTIONS (2)
  - BLOOD GLUCOSE INCREASED [None]
  - HYPOGLYCAEMIA [None]
